FAERS Safety Report 6676527-9 (Version None)
Quarter: 2010Q2

REPORT INFORMATION
  Report Type: 
  Country: None (occurrence: None)
  Receive Date: 20100412
  Receipt Date: 20100401
  Transmission Date: 20101027
  Serious: Yes (Hospitalization, Other)
  Sender: FDA-Public Use
  Company Number: US-NOVOPROD-303735

PATIENT
  Sex: Female
  Weight: 81.633 kg

DRUGS (2)
  1. LEVEMIR [Suspect]
     Indication: TYPE 2 DIABETES MELLITUS
     Dosage: 55 IU, QD
     Route: 058
     Dates: start: 20080101
  2. EFFEXOR [Suspect]
     Indication: DRUG USE FOR UNKNOWN INDICATION

REACTIONS (5)
  - ANXIETY [None]
  - BLOOD GLUCOSE INCREASED [None]
  - DRUG DISPENSING ERROR [None]
  - ELECTROCARDIOGRAM QT PROLONGED [None]
  - HEART RATE INCREASED [None]
